FAERS Safety Report 5412760-1 (Version None)
Quarter: 2007Q3

REPORT INFORMATION
  Report Type: 
  Country: None (occurrence: None)
  Receive Date: 20070813
  Receipt Date: 20070803
  Transmission Date: 20080115
  Serious: Yes (Death, Other)
  Sender: FDA-Public Use
  Company Number: US-PURDUE-USA_2007_0028730

PATIENT
  Age: 43 Year
  Sex: Male

DRUGS (2)
  1. OXYCONTIN [Suspect]
     Indication: BACK DISORDER
  2. ANTIDEPRESSANTS [Concomitant]

REACTIONS (3)
  - AGGRESSION [None]
  - DEATH [None]
  - SUICIDAL IDEATION [None]
